FAERS Safety Report 9640721 (Version 1)
Quarter: 2013Q4

REPORT INFORMATION
  Report Type: Report from Study
  Country: US (occurrence: US)
  Receive Date: 20131023
  Receipt Date: 20131023
  Transmission Date: 20140711
  Serious: No
  Sender: FDA-Public Use
  Company Number: US-ABBVIE-13P-163-1142515-00

PATIENT
  Age: 27 Year
  Sex: Female

DRUGS (6)
  1. LUPRON DEPOT [Suspect]
     Indication: ENDOMETRIOSIS
     Dates: start: 20130827
  2. PROPRANOLOL [Concomitant]
     Indication: PRODUCT USED FOR UNKNOWN INDICATION
     Dosage: 10 MG DAILY
     Route: 048
  3. DOXYCYCLINE [Concomitant]
     Indication: PRODUCT USED FOR UNKNOWN INDICATION
  4. METRONIDAZOLE [Concomitant]
     Indication: PRODUCT USED FOR UNKNOWN INDICATION
     Dosage: 500 MG DAILY
  5. MOTRIN [Concomitant]
     Indication: PAIN
  6. BUTALBITAL [Concomitant]
     Indication: PRODUCT USED FOR UNKNOWN INDICATION

REACTIONS (4)
  - Hypoaesthesia [Not Recovered/Not Resolved]
  - Headache [Recovered/Resolved]
  - Hot flush [Recovered/Resolved]
  - Vulvovaginal dryness [Recovered/Resolved]
